FAERS Safety Report 15104339 (Version 1)
Quarter: 2018Q2

REPORT INFORMATION
  Report Type: Spontaneous
  Country: US (occurrence: US)
  Receive Date: 20180611
  Receipt Date: 20180611
  Transmission Date: 20180711
  Serious: Yes (Hospitalization)
  Sender: FDA-Public Use
  Company Number: None

PATIENT
  Age: 72 Year
  Sex: Male
  Weight: 168.3 kg

DRUGS (1)
  1. VICTOZA [Suspect]
     Active Substance: LIRAGLUTIDE
     Indication: TYPE 2 DIABETES MELLITUS
     Route: 058
     Dates: start: 20180401, end: 20180611

REACTIONS (5)
  - Sepsis [None]
  - Dialysis [None]
  - Cholangitis [None]
  - Acute kidney injury [None]
  - Cholelithiasis [None]

NARRATIVE: CASE EVENT DATE: 20180521
